FAERS Safety Report 7628335-X (Version None)
Quarter: 2011Q3

REPORT INFORMATION
  Report Type: 
  Country: None (occurrence: None)
  Receive Date: 20110714
  Receipt Date: 20110628
  Transmission Date: 20111222
  Serious: Yes (Other)
  Sender: FDA-Public Use
  Company Number: 2011AP001260

PATIENT
  Sex: Female

DRUGS (6)
  1. RAMIPRIL [Suspect]
     Indication: RENAL VESSEL DISORDER
     Dosage: PO
     Route: 048
  2. ESCITALOPRAM OXALATE [Concomitant]
  3. ESCITALOPRAM OXALATE [Concomitant]
  4. SEROQUEL [Suspect]
     Indication: SCHIZOAFFECTIVE DISORDER BIPOLAR TYPE
     Dosage: 450 MG; QD PO; PO
     Route: 048
     Dates: start: 20100101
  5. SEROQUEL [Suspect]
     Indication: SCHIZOAFFECTIVE DISORDER BIPOLAR TYPE
     Dosage: 450 MG; QD PO; PO
     Route: 048
     Dates: start: 20100101
  6. VALPROIC ACID [Concomitant]

REACTIONS (6)
  - DIVERTICULITIS [None]
  - ANXIETY [None]
  - ORTHOSTATIC HYPOTENSION [None]
  - DRUG INTOLERANCE [None]
  - DIARRHOEA [None]
  - DIZZINESS [None]
